FAERS Safety Report 9408825 (Version 1)
Quarter: 2013Q3

REPORT INFORMATION
  Report Type: Spontaneous
  Country: US (occurrence: US)
  Receive Date: 20130719
  Receipt Date: 20130719
  Transmission Date: 20140515
  Serious: No
  Sender: FDA-Public Use
  Company Number: US-009507513-1307USA008013

PATIENT
  Age: 60 Year
  Sex: Female

DRUGS (6)
  1. ASMANEX TWISTHALER [Suspect]
     Indication: ASTHMA
     Dosage: 2 INHALATION TWICE A DAY
     Route: 055
     Dates: start: 20120213
  2. PREDNISONE [Concomitant]
     Route: 048
  3. OMEPRAZOLE [Concomitant]
     Route: 048
  4. VENTOLIN (ALBUTEROL) [Concomitant]
  5. LISINOPRIL (+) HYDROCHLOROTHIAZIDE [Concomitant]
     Route: 048
  6. FLUTICASONE [Concomitant]

REACTIONS (2)
  - Product quality issue [Unknown]
  - Drug ineffective [Unknown]
